FAERS Safety Report 11260179 (Version 1)
Quarter: 2015Q3

REPORT INFORMATION
  Report Type: Spontaneous
  Country: AR (occurrence: AR)
  Receive Date: 20150710
  Receipt Date: 20150710
  Transmission Date: 20151125
  Serious: Yes (Other)
  Sender: FDA-Public Use
  Company Number: AR-PFIZER INC-2015176818

PATIENT
  Age: 70 Year
  Sex: Female

DRUGS (2)
  1. LOTRIAL /00574902/ [Concomitant]
     Dosage: UNK
  2. SUTENT [Suspect]
     Active Substance: SUNITINIB MALATE
     Indication: METASTATIC RENAL CELL CARCINOMA
     Dosage: 50 MG, CYCLIC, (4 WEEKS ON, 2 WEEKS OFF)
     Dates: start: 20150427, end: 20150512

REACTIONS (3)
  - Colitis [Recovered/Resolved]
  - Haematochezia [Recovered/Resolved]
  - Diarrhoea haemorrhagic [Unknown]

NARRATIVE: CASE EVENT DATE: 20150512
